FAERS Safety Report 15484413 (Version 1)
Quarter: 2018Q4

REPORT INFORMATION
  Report Type: Report from Study
  Country: PK (occurrence: PK)
  Receive Date: 20181010
  Receipt Date: 20181010
  Transmission Date: 20190205
  Serious: Yes (Hospitalization, Other)
  Sender: FDA-Public Use
  Company Number: PK-SA-2018SA257720

PATIENT
  Age: 61 Year
  Sex: Male

DRUGS (2)
  1. TAGAMET [Concomitant]
     Active Substance: CIMETIDINE
     Dosage: 500 MG, BID
     Dates: start: 20180717
  2. INSULIN GLARGINE [Suspect]
     Active Substance: INSULIN GLARGINE
     Indication: DIABETES MELLITUS
     Dosage: 50 IU, HS
     Route: 058

REACTIONS (4)
  - Blood glucose increased [Unknown]
  - Kidney infection [Unknown]
  - Diabetes mellitus inadequate control [Recovered/Resolved]
  - Urinary tract infection [Unknown]

NARRATIVE: CASE EVENT DATE: 20180911
